FAERS Safety Report 14835336 (Version 2)
Quarter: 2018Q2

REPORT INFORMATION
  Report Type: Report from Study
  Country: US (occurrence: US)
  Receive Date: 20180502
  Receipt Date: 20180504
  Transmission Date: 20180711
  Serious: Yes (Life-Threatening, Hospitalization, Other)
  Sender: FDA-Public Use
  Company Number: US-ROCHE-1251181

PATIENT
  Age: 43 Year
  Sex: Male

DRUGS (75)
  1. RANIBIZUMAB. [Suspect]
     Active Substance: RANIBIZUMAB
     Dosage: IN LEFT EYE (OS)
     Route: 050
     Dates: start: 20131218
  2. RANIBIZUMAB. [Suspect]
     Active Substance: RANIBIZUMAB
     Dosage: OD
     Route: 050
     Dates: start: 20170712
  3. INSULIN ASPART [Concomitant]
     Active Substance: INSULIN ASPART
     Indication: DIABETES MELLITUS
     Route: 058
  4. DIOVAN [Concomitant]
     Active Substance: VALSARTAN
     Route: 065
     Dates: start: 201405, end: 201503
  5. RANIBIZUMAB. [Suspect]
     Active Substance: RANIBIZUMAB
     Route: 050
     Dates: start: 20130102
  6. RANIBIZUMAB. [Suspect]
     Active Substance: RANIBIZUMAB
     Dosage: IN RIGHT EYE (OD) AND IN LEFT EYE (OS)
     Route: 050
     Dates: start: 20130304
  7. RANIBIZUMAB. [Suspect]
     Active Substance: RANIBIZUMAB
     Dosage: IN RIGHT EYE (OD)
     Route: 050
     Dates: start: 20130327
  8. RANIBIZUMAB. [Suspect]
     Active Substance: RANIBIZUMAB
     Dosage: OS
     Route: 050
     Dates: start: 20140820
  9. RANIBIZUMAB. [Suspect]
     Active Substance: RANIBIZUMAB
     Dosage: OS AND OD
     Route: 050
     Dates: start: 20141217
  10. RANIBIZUMAB. [Suspect]
     Active Substance: RANIBIZUMAB
     Dosage: OS
     Route: 050
     Dates: start: 20150729
  11. GLUCOPHAGE [Concomitant]
     Active Substance: METFORMIN HYDROCHLORIDE
     Indication: DIABETES MELLITUS
     Route: 048
  12. CATAPRES-TTS [Concomitant]
     Active Substance: CLONIDINE
     Indication: HYPERTENSION
     Route: 062
     Dates: start: 20140428, end: 201506
  13. ESCITALOPRAM [Concomitant]
     Active Substance: ESCITALOPRAM OXALATE
     Indication: DEPRESSION
     Route: 048
     Dates: start: 201404
  14. ASPIRIN. [Concomitant]
     Active Substance: ASPIRIN
     Indication: PROPHYLAXIS
     Route: 048
  15. IRBESARTAN. [Concomitant]
     Active Substance: IRBESARTAN
     Indication: HYPERTENSION
     Route: 048
     Dates: start: 201503, end: 201605
  16. CILOSTAZOL. [Concomitant]
     Active Substance: CILOSTAZOL
     Indication: PERIPHERAL ARTERIAL OCCLUSIVE DISEASE
     Route: 048
     Dates: start: 201505
  17. FLOMAX [Concomitant]
     Active Substance: TAMSULOSIN HYDROCHLORIDE
     Route: 048
     Dates: start: 20151118, end: 20151202
  18. MAGNESIUM CITRATE. [Concomitant]
     Active Substance: MAGNESIUM CITRATE
     Route: 030
     Dates: start: 20160702
  19. GLUCOPHAGE [Concomitant]
     Active Substance: METFORMIN HYDROCHLORIDE
     Indication: HYPERCHOLESTEROLAEMIA
     Route: 048
  20. RANIBIZUMAB. [Suspect]
     Active Substance: RANIBIZUMAB
     Dosage: OD
     Route: 050
     Dates: start: 20170531
  21. ROSUVASTATIN. [Concomitant]
     Active Substance: ROSUVASTATIN
     Indication: HYPERCHOLESTEROLAEMIA
     Route: 048
  22. PROAIR HFA [Concomitant]
     Active Substance: ALBUTEROL SULFATE
     Dosage: 2-3 PER MONTH.
     Route: 055
  23. LORAZEPAM. [Concomitant]
     Active Substance: LORAZEPAM
     Indication: DEPRESSION
     Route: 065
     Dates: start: 201308, end: 201603
  24. CLONIDINE. [Concomitant]
     Active Substance: CLONIDINE
     Indication: HYPERTENSION
     Route: 048
     Dates: start: 201308, end: 201405
  25. LANTUS [Concomitant]
     Active Substance: INSULIN GLARGINE
     Indication: DIABETES MELLITUS
     Dosage: 40 UNITS
     Route: 058
     Dates: start: 201406
  26. TAMSULOSIN [Concomitant]
     Active Substance: TAMSULOSIN
     Indication: NEPHROLITHIASIS
     Route: 048
     Dates: start: 20141101, end: 20141120
  27. CIPROFLOXACIN. [Concomitant]
     Active Substance: CIPROFLOXACIN
     Indication: URINARY TRACT INFECTION
     Route: 048
     Dates: start: 20150108, end: 20150122
  28. CILOSTAZOL. [Concomitant]
     Active Substance: CILOSTAZOL
     Route: 048
  29. CIPRO [Concomitant]
     Active Substance: CIPROFLOXACIN HYDROCHLORIDE
     Indication: URINARY TRACT INFECTION
     Route: 048
     Dates: start: 20151109, end: 201511
  30. RANIBIZUMAB. [Suspect]
     Active Substance: RANIBIZUMAB
     Indication: DIABETIC RETINOPATHY
     Dosage: IN RIGHT EYE (OD) AND IN LEFT EYE (OS)
     Route: 050
     Dates: start: 20121203
  31. RANIBIZUMAB. [Suspect]
     Active Substance: RANIBIZUMAB
     Dosage: IN RIGHT EYE (OD)
     Route: 050
     Dates: start: 20130204
  32. RANIBIZUMAB. [Suspect]
     Active Substance: RANIBIZUMAB
     Dosage: OD
     Route: 050
     Dates: start: 20160817
  33. RANIBIZUMAB. [Suspect]
     Active Substance: RANIBIZUMAB
     Dosage: OD
     Route: 050
     Dates: start: 20170118
  34. HUMULIN N [Concomitant]
     Active Substance: INSULIN HUMAN
     Indication: DIABETES MELLITUS
     Route: 058
  35. OMEPRAZOLE. [Concomitant]
     Active Substance: OMEPRAZOLE
     Route: 048
  36. MAXITROL [Concomitant]
     Active Substance: DEXAMETHASONE\NEOMYCIN SULFATE\POLYMYXIN B SULFATE
     Route: 061
     Dates: start: 20140826, end: 20140905
  37. BYSTOLIC [Concomitant]
     Active Substance: NEBIVOLOL HYDROCHLORIDE
     Indication: HYPERTENSION
     Route: 048
     Dates: start: 201304, end: 201603
  38. BUDESONIDE. [Concomitant]
     Active Substance: BUDESONIDE
     Indication: CHRONIC OBSTRUCTIVE PULMONARY DISEASE
     Route: 048
     Dates: start: 201405, end: 201602
  39. NOVOLOG [Concomitant]
     Active Substance: INSULIN ASPART
     Indication: DIABETES MELLITUS
     Dosage: 18 UNITS
     Route: 058
  40. BROVANA [Concomitant]
     Active Substance: ARFORMOTEROL TARTRATE
     Indication: CHRONIC OBSTRUCTIVE PULMONARY DISEASE
     Route: 048
     Dates: start: 201405, end: 201602
  41. CIPRO [Concomitant]
     Active Substance: CIPROFLOXACIN HYDROCHLORIDE
     Route: 065
  42. RANIBIZUMAB. [Suspect]
     Active Substance: RANIBIZUMAB
     Dosage: IN RIGHT EYE (OD)
     Route: 050
     Dates: start: 20140319
  43. ATENOLOL. [Concomitant]
     Active Substance: ATENOLOL
     Route: 048
  44. ZOLOFT [Concomitant]
     Active Substance: SERTRALINE HYDROCHLORIDE
     Indication: HYPERTENSION
     Route: 065
     Dates: start: 201404, end: 201405
  45. VASOTEC [Concomitant]
     Active Substance: ENALAPRIL MALEATE
     Indication: HYPERTENSION
     Route: 048
     Dates: start: 201304, end: 201604
  46. HYDROCHLOROTHIAZIDE. [Concomitant]
     Active Substance: HYDROCHLOROTHIAZIDE
     Route: 065
     Dates: start: 201405, end: 201511
  47. SOLU-MEDROL [Concomitant]
     Active Substance: METHYLPREDNISOLONE SODIUM SUCCINATE
     Indication: CHRONIC OBSTRUCTIVE PULMONARY DISEASE
     Route: 030
  48. RAPAFLO [Concomitant]
     Active Substance: SILODOSIN
     Indication: URINARY RETENTION
     Route: 048
  49. RANIBIZUMAB. [Suspect]
     Active Substance: RANIBIZUMAB
     Dosage: IN RIGHT EYE (OD)
     Route: 050
     Dates: start: 20140507
  50. RANIBIZUMAB. [Suspect]
     Active Substance: RANIBIZUMAB
     Dosage: OD
     Route: 050
     Dates: start: 20151111
  51. HYDRALAZINE HYDROCHLORIDE. [Concomitant]
     Active Substance: HYDRALAZINE HYDROCHLORIDE
     Route: 048
     Dates: start: 201405, end: 201507
  52. DUONEB [Concomitant]
     Active Substance: ALBUTEROL SULFATE\IPRATROPIUM BROMIDE
     Route: 048
  53. SPIRIVA [Concomitant]
     Active Substance: TIOTROPIUM BROMIDE MONOHYDRATE
     Indication: CHRONIC OBSTRUCTIVE PULMONARY DISEASE
     Route: 048
     Dates: start: 201403, end: 201503
  54. ALBUTEROL/IPRATROPIUM [Concomitant]
     Active Substance: ALBUTEROL\IPRATROPIUM
     Indication: CHRONIC OBSTRUCTIVE PULMONARY DISEASE
     Route: 048
  55. OXYGEN. [Concomitant]
     Active Substance: OXYGEN
     Indication: CHRONIC OBSTRUCTIVE PULMONARY DISEASE
     Route: 048
     Dates: start: 20150511
  56. NITROSTAT [Concomitant]
     Active Substance: NITROGLYCERIN
     Route: 060
     Dates: start: 201405
  57. AMARYL [Concomitant]
     Active Substance: GLIMEPIRIDE
     Indication: DIABETES MELLITUS
     Route: 048
     Dates: start: 20161202
  58. RANIBIZUMAB. [Suspect]
     Active Substance: RANIBIZUMAB
     Dosage: IN RIGHT EYE (OD) AND IN LEFT EYE (OS)
     Route: 050
     Dates: start: 20130717
  59. RANIBIZUMAB. [Suspect]
     Active Substance: RANIBIZUMAB
     Dosage: IN RIGHT EYE (OD)
     Route: 050
     Dates: start: 20130821
  60. RANIBIZUMAB. [Suspect]
     Active Substance: RANIBIZUMAB
     Dosage: IN RIGHT EYE (OD)
     Route: 050
     Dates: start: 20130911
  61. RANIBIZUMAB. [Suspect]
     Active Substance: RANIBIZUMAB
     Dosage: OD
     Route: 050
     Dates: start: 20160713
  62. CLONIDINE. [Concomitant]
     Active Substance: CLONIDINE
     Route: 048
     Dates: start: 201405
  63. ENALAPRIL [Concomitant]
     Active Substance: ENALAPRIL
     Indication: HYPERTENSION
     Route: 048
     Dates: start: 201502
  64. MUCOMYST [Concomitant]
     Active Substance: ACETYLCYSTEINE
     Route: 048
     Dates: start: 201602, end: 201604
  65. ALLOPURINOL. [Concomitant]
     Active Substance: ALLOPURINOL
     Indication: NEPHROLITHIASIS
     Route: 048
     Dates: start: 20170111
  66. BUSPIRONE [Concomitant]
     Active Substance: BUSPIRONE HYDROCHLORIDE
     Indication: DEPRESSION
     Route: 048
     Dates: start: 201701
  67. FUROSEMIDE. [Concomitant]
     Active Substance: FUROSEMIDE
     Indication: FLUID RETENTION
     Route: 048
     Dates: start: 201703
  68. HUMALOG [Concomitant]
     Active Substance: INSULIN LISPRO
     Indication: DIABETES MELLITUS
     Route: 058
     Dates: start: 201703
  69. RANIBIZUMAB. [Suspect]
     Active Substance: RANIBIZUMAB
     Dosage: IN RIGHT EYE (OD)
     Route: 050
     Dates: start: 20140528
  70. RANIBIZUMAB. [Suspect]
     Active Substance: RANIBIZUMAB
     Dosage: OS
     Route: 050
     Dates: start: 20161019
  71. RANIBIZUMAB. [Suspect]
     Active Substance: RANIBIZUMAB
     Dosage: OS
     Route: 050
     Dates: start: 20170412
  72. COMBIVENT [Concomitant]
     Active Substance: ALBUTEROL SULFATE\IPRATROPIUM BROMIDE
     Indication: CHRONIC OBSTRUCTIVE PULMONARY DISEASE
     Route: 065
  73. LEVEMIR [Concomitant]
     Active Substance: INSULIN DETEMIR
     Dosage: 30 UNITS
     Route: 050
  74. DIFLUCAN [Concomitant]
     Active Substance: FLUCONAZOLE
     Route: 048
     Dates: start: 20160803, end: 201609
  75. HUMULIN N [Concomitant]
     Active Substance: INSULIN HUMAN
     Indication: DIABETES MELLITUS
     Route: 058

REACTIONS (11)
  - Pneumonia [Unknown]
  - Chest pain [Recovered/Resolved]
  - Nephrolithiasis [Not Recovered/Not Resolved]
  - Hypertension [Recovered/Resolved]
  - Pneumonia [Recovered/Resolved]
  - Pyelonephritis [Recovered/Resolved]
  - Lung infection [Not Recovered/Not Resolved]
  - Atrioventricular block second degree [Recovered/Resolved with Sequelae]
  - Chest pain [Recovered/Resolved]
  - Nausea [Recovered/Resolved]
  - Sepsis [Recovered/Resolved]

NARRATIVE: CASE EVENT DATE: 20130410
